FAERS Safety Report 6128234-9 (Version None)
Quarter: 2009Q1

REPORT INFORMATION
  Report Type: 
  Country: None (occurrence: None)
  Receive Date: 20090319
  Receipt Date: 20090306
  Transmission Date: 20090719
  Serious: Yes (Other)
  Sender: FDA-Public Use
  Company Number: 1000004984

PATIENT
  Age: 39 Year
  Sex: Male

DRUGS (3)
  1. LEXAPRO [Suspect]
     Indication: DEPRESSION
     Dosage: 10 MG (10 MG, 1 IN 1 D), ORAL
     Route: 048
     Dates: start: 20090129, end: 20090101
  2. PROTIUM (TABLETS) [Concomitant]
  3. LARIG (TABLETS) [Concomitant]

REACTIONS (3)
  - HYPERHIDROSIS [None]
  - MUSCLE TWITCHING [None]
  - VOMITING [None]
